FAERS Safety Report 13331306 (Version 1)
Quarter: 2017Q1

REPORT INFORMATION
  Report Type: Report from Study
  Country: BR (occurrence: BR)
  Receive Date: 20170313
  Receipt Date: 20170313
  Transmission Date: 20170428
  Serious: Yes (Other)
  Sender: FDA-Public Use
  Company Number: BR-BAYER-2016-123208

PATIENT
  Age: 30 Year
  Sex: Female

DRUGS (1)
  1. QLAIRA [Suspect]
     Active Substance: DIENOGEST\ESTRADIOL VALERATE
     Dosage: UNK
     Route: 048
     Dates: end: 2016

REACTIONS (9)
  - Acne [Not Recovered/Not Resolved]
  - Drug ineffective [None]
  - Product use issue [None]
  - Pregnancy on oral contraceptive [Recovered/Resolved]
  - Gestational diabetes [None]
  - Amenorrhoea [Not Recovered/Not Resolved]
  - Breast pain [None]
  - Therapeutic response unexpected [None]
  - Metrorrhagia [Recovered/Resolved]

NARRATIVE: CASE EVENT DATE: 201601
